FAERS Safety Report 9706914 (Version 3)
Quarter: 2013Q4

REPORT INFORMATION
  Report Type: Spontaneous
  Country: US (occurrence: US)
  Receive Date: 20131125
  Receipt Date: 20131203
  Transmission Date: 20140711
  Serious: Yes (Other)
  Sender: FDA-Public Use
  Company Number: US-JNJFOC-20130606592

PATIENT
  Sex: Male

DRUGS (1)
  1. RISPERDAL [Suspect]
     Indication: PRODUCT USED FOR UNKNOWN INDICATION
     Route: 048
     Dates: end: 2000

REACTIONS (5)
  - Hypogonadism [Recovering/Resolving]
  - Gynaecomastia [Unknown]
  - Varicocele [Unknown]
  - Weight increased [Unknown]
  - Hydrocele [Unknown]
